FAERS Safety Report 11033501 (Version 3)
Quarter: 2015Q3

REPORT INFORMATION
  Report Type: Spontaneous
  Country: US (occurrence: US)
  Receive Date: 20150415
  Receipt Date: 20150819
  Transmission Date: 20151125
  Serious: Yes (Death, Hospitalization, Other)
  Sender: FDA-Public Use
  Company Number: US-009507513-1504USA015489

PATIENT
  Sex: Male
  Weight: 70.75 kg

DRUGS (1)
  1. JANUVIA [Suspect]
     Active Substance: SITAGLIPTIN PHOSPHATE
     Indication: TYPE 2 DIABETES MELLITUS
     Dosage: 50 MG, QD
     Route: 048
     Dates: start: 20091214, end: 20101105

REACTIONS (24)
  - Metastases to lymph nodes [Unknown]
  - Cardiomyopathy [Unknown]
  - Feeding tube complication [Recovered/Resolved]
  - Cholecystectomy [Unknown]
  - Decreased appetite [Unknown]
  - Thrombocytopenia [Recovered/Resolved]
  - Depression [Unknown]
  - Hypertension [Unknown]
  - Cardiac failure congestive [Unknown]
  - Fall [Unknown]
  - Ventricular tachycardia [Unknown]
  - Staphylococcal infection [Unknown]
  - Urine output decreased [Unknown]
  - Oedema peripheral [Unknown]
  - Pyrexia [Unknown]
  - Carotid artery stenosis [Unknown]
  - Rib fracture [Unknown]
  - Hip arthroplasty [Unknown]
  - Depression [Unknown]
  - Radiotherapy [Unknown]
  - Cerebrovascular accident [Unknown]
  - Cough [Unknown]
  - Adenocarcinoma pancreas [Fatal]
  - Pancreaticoduodenectomy [Unknown]

NARRATIVE: CASE EVENT DATE: 2010
